FAERS Safety Report 8825791 (Version 1)
Quarter: 2012Q4

REPORT INFORMATION
  Report Type: 
  Country: US (occurrence: US)
  Receive Date: 20121004
  Receipt Date: 20121004
  Transmission Date: 20130627
  Serious: No
  Sender: FDA-Public Use
  Company Number: US-ASTRAZENECA-2009SE07484

PATIENT
  Age: 81 Year
  Sex: Female

DRUGS (12)
  1. ATACAND [Suspect]
     Route: 048
  2. ATACAND HCT [Suspect]
     Dosage: 32/12.5 MG
     Route: 048
  3. TOPROL XL [Suspect]
     Route: 048
  4. NEXIUM [Concomitant]
  5. CRESTOR [Concomitant]
  6. ASPIRIN [Concomitant]
  7. CENTRUM SILVER [Concomitant]
  8. CALCIUM [Concomitant]
  9. PROLIA [Concomitant]
  10. VITAMIN D [Concomitant]
  11. THYROXINE [Concomitant]
  12. TIMOLOL [Concomitant]

REACTIONS (2)
  - Intentional drug misuse [Unknown]
  - Drug ineffective [Unknown]
